FAERS Safety Report 4533191-2 (Version None)
Quarter: 2005Q1

REPORT INFORMATION
  Report Type: 
  Country: None (occurrence: None)
  Receive Date: 20041206
  Receipt Date: 20041105
  Transmission Date: 20050727
  Serious: No
  Sender: FDA-Public Use
  Company Number: USA041082131

PATIENT
  Age: 58 Year
  Sex: Female

DRUGS (3)
  1. CYMBALTA [Suspect]
     Indication: DEPRESSION
     Dosage: 30 MG DAY
     Dates: start: 20041022
  2. LUVOX [Concomitant]
  3. TOPAMAX [Concomitant]

REACTIONS (2)
  - ABNORMAL SENSATION IN EYE [None]
  - OCULAR HYPERAEMIA [None]
